FAERS Safety Report 7484727-3 (Version None)
Quarter: 2011Q2

REPORT INFORMATION
  Report Type: 
  Country: None (occurrence: None)
  Receive Date: 20110517
  Receipt Date: 20110505
  Transmission Date: 20111010
  Serious: Yes (Death, Hospitalization)
  Sender: FDA-Public Use
  Company Number: GB-ELI_LILLY_AND_COMPANY-GB201104004143

PATIENT
  Sex: Male
  Weight: 64.5 kg

DRUGS (7)
  1. BECLOMETHASONE DIPROPIONATE [Concomitant]
     Dosage: UNK
     Dates: start: 19690101
  2. ZOPICLONE [Concomitant]
     Dosage: UNK
     Dates: start: 20110101
  3. CISPLATIN [Suspect]
     Indication: NON-SMALL CELL LUNG CANCER
     Dosage: 135 MG, UNK
     Route: 042
     Dates: start: 20101224
  4. CO-DYDRAMOL [Concomitant]
     Dosage: UNK
     Dates: start: 20050101
  5. PEMETREXED [Suspect]
     Indication: NON-SMALL CELL LUNG CANCER
     Dosage: 900 MG, UNK
     Route: 042
     Dates: start: 20101224
  6. NECITUMUMAB (11F8) (LY3012211) [Suspect]
     Indication: NON-SMALL CELL LUNG CANCER
     Dosage: 800 MG, UNK
     Route: 042
     Dates: start: 20101224
  7. VENTOLIN                                /SCH/ [Concomitant]
     Dosage: UNK
     Dates: start: 19690101

REACTIONS (3)
  - THROMBOCYTOPENIA [None]
  - ENTEROCOLITIS [None]
  - NEUTROPENIC SEPSIS [None]
